FAERS Safety Report 5751642-2 (Version None)
Quarter: 2008Q2

REPORT INFORMATION
  Report Type: 
  Country: None (occurrence: None)
  Receive Date: 20080528
  Receipt Date: 20080521
  Transmission Date: 20081010
  Serious: Yes (Hospitalization, Other)
  Sender: FDA-Public Use
  Company Number: PHHY2008FI06496

PATIENT
  Age: 70 Year
  Sex: Female

DRUGS (3)
  1. CLOZAPINE [Suspect]
     Route: 048
  2. CLOZAPINE [Suspect]
     Dosage: UPTO 100 MG/DAY
     Route: 048
  3. ABILIFY [Concomitant]
     Dosage: 9.75 MG

REACTIONS (7)
  - BLOOD CREATINE PHOSPHOKINASE INCREASED [None]
  - DEHYDRATION [None]
  - FEELING ABNORMAL [None]
  - NEUROLEPTIC MALIGNANT SYNDROME [None]
  - PYREXIA [None]
  - RENAL IMPAIRMENT [None]
  - TACHYCARDIA [None]
